FAERS Safety Report 10047995 (Version 1)
Quarter: 2014Q1

REPORT INFORMATION
  Report Type: Spontaneous
  Country: US (occurrence: US)
  Receive Date: 20140331
  Receipt Date: 20140331
  Transmission Date: 20141002
  Serious: Yes (Other)
  Sender: FDA-Public Use
  Company Number: US-CELGENEUS-163-20785-13061411

PATIENT
  Sex: 0

DRUGS (1)
  1. THALOMID [Suspect]
     Indication: GLIOBLASTOMA
     Dosage: 200MG AT BEDTIME; INCREASED EVERY 1-2 WKS BY 100MG-200MG TO 1,200MG AS TOLERATED
     Route: 048
     Dates: start: 19990504, end: 19990820

REACTIONS (35)
  - Liver disorder [Unknown]
  - Laboratory test abnormal [Unknown]
  - Visual impairment [Unknown]
  - Lung disorder [Unknown]
  - Renal disorder [Unknown]
  - Cranial nerve injury [Unknown]
  - Encephalopathy [Unknown]
  - Speech disorder [Unknown]
  - Recall phenomenon [Unknown]
  - Arrhythmia [Unknown]
  - Amnesia [Unknown]
  - Ataxia [Unknown]
  - Hearing impaired [Unknown]
  - Convulsion [Unknown]
  - Hypersensitivity [Unknown]
  - Bone marrow disorder [Unknown]
  - Oedema [Unknown]
  - Fatigue [Unknown]
  - Skin reaction [Unknown]
  - Infection [Unknown]
  - Febrile neutropenia [Unknown]
  - Headache [Unknown]
  - Depression [Unknown]
  - Dizziness [Unknown]
  - Polyneuropathy [Unknown]
  - Tremor [Unknown]
  - Hypertension [Unknown]
  - Thrombosis [Unknown]
  - Endocrine disorder [Unknown]
  - Insomnia [Unknown]
  - Disease progression [Unknown]
  - Nausea [Unknown]
  - Vomiting [Unknown]
  - Vertigo [Unknown]
  - Constipation [Unknown]
